FAERS Safety Report 4948252-3 (Version None)
Quarter: 2006Q1

REPORT INFORMATION
  Report Type: 
  Country: None (occurrence: None)
  Receive Date: 20060127
  Receipt Date: 20050228
  Transmission Date: 20060701
  Serious: Yes (Other)
  Sender: FDA-Public Use
  Company Number: 05-02-0306

PATIENT
  Age: 38 Year
  Sex: Male
  Weight: 111.1313 kg

DRUGS (13)
  1. CLOZAPINE [Suspect]
     Indication: SCHIZOAFFECTIVE DISORDER
     Dosage: 300MG QD,  ORAL
     Route: 048
     Dates: start: 20020301, end: 20050222
  2. DIAZEPAM [Concomitant]
  3. GABAPENTIN [Concomitant]
  4. VALPROIC ACID [Concomitant]
  5. METFORMIN HCL [Concomitant]
  6. AMLODIPINE [Concomitant]
  7. ATENOLOL [Concomitant]
  8. DOCUSATE (DOCUSATE) [Concomitant]
  9. HYDROCHLOROTHIAZIDE [Concomitant]
  10. LEVOTHYROXINE SODIUM [Concomitant]
  11. METFORMIN HCL [Concomitant]
  12. POTASSIUM CHLORIDE [Concomitant]
  13. SIMVASTATIN [Concomitant]

REACTIONS (1)
  - NEUTROPENIA [None]
